FAERS Safety Report 12696192 (Version 1)
Quarter: 2016Q3

REPORT INFORMATION
  Report Type: Spontaneous
  Country: DK (occurrence: JP)
  Receive Date: 20160829
  Receipt Date: 20160829
  Transmission Date: 20161109
  Serious: Yes (Hospitalization, Other)
  Sender: FDA-Public Use
  Company Number: JP-FRI-1000087131

PATIENT
  Age: 48 Year
  Sex: Male

DRUGS (15)
  1. EFFEXOR [Suspect]
     Active Substance: VENLAFAXINE HYDROCHLORIDE
     Dosage: 112.5 MG
     Route: 048
     Dates: start: 20160126, end: 20160208
  2. EFFEXOR [Suspect]
     Active Substance: VENLAFAXINE HYDROCHLORIDE
     Dosage: 150 MG
     Route: 048
     Dates: start: 20160209, end: 20160222
  3. EFFEXOR [Suspect]
     Active Substance: VENLAFAXINE HYDROCHLORIDE
     Indication: DEPRESSION
     Dosage: 37.5 MG
     Route: 048
     Dates: start: 20151215, end: 20151228
  4. SENIRAN [Concomitant]
     Active Substance: BROMAZEPAM
     Indication: DEPRESSION
     Dosage: 6 MG
     Route: 048
     Dates: start: 20150421
  5. VEGETAMIN-B [Concomitant]
     Active Substance: CHLORPROMAZINE HYDROCHLORIDE\PHENOBARBITAL\PROMETHAZINE
     Indication: INSOMNIA
     Dosage: 1 DF
     Route: 048
     Dates: start: 20150421
  6. ESCITALOPRAM [Suspect]
     Active Substance: ESCITALOPRAM OXALATE
     Indication: DEPRESSION
     Dosage: 10 MG
     Route: 048
     Dates: start: 20151117, end: 20160208
  7. EFFEXOR [Suspect]
     Active Substance: VENLAFAXINE HYDROCHLORIDE
     Dosage: 75 MG
     Route: 048
     Dates: start: 20151229, end: 20160125
  8. CYSTANIN [Concomitant]
     Indication: THIRST
     Dosage: 900 MG
     Route: 048
     Dates: start: 20150421, end: 20160408
  9. ALOSENN [Concomitant]
     Active Substance: SENNA LEAF
     Indication: CONSTIPATION
     Dosage: 4.5 GRAM
     Route: 048
     Dates: start: 20150421, end: 20160408
  10. PANTETHINE [Concomitant]
     Active Substance: PANTETHINE
     Indication: CONSTIPATION
     Dosage: 9 GRAM
     Route: 048
     Dates: start: 20150421, end: 20160408
  11. EFFEXOR [Suspect]
     Active Substance: VENLAFAXINE HYDROCHLORIDE
     Dosage: 112.5 MG 2 TIMES PER DAY
     Route: 048
     Dates: start: 20160223, end: 20160407
  12. FLUNITRAZEPAM [Concomitant]
     Active Substance: FLUNITRAZEPAM
     Indication: INSOMNIA
     Dosage: 4 MG
     Route: 048
     Dates: start: 20150421
  13. VEMAS [Concomitant]
     Active Substance: CASANTHRANOL\DOCUSATE SODIUM
     Indication: CONSTIPATION
     Dosage: 2 TABLETS THREE TIMES PER DAY
     Route: 048
     Dates: start: 20150421, end: 20160408
  14. SORENTMIN [Concomitant]
     Active Substance: BROTIZOLAM
     Indication: INSOMNIA
     Dosage: 0.25 MG
     Route: 048
     Dates: start: 20150421
  15. QUETIAPINE. [Concomitant]
     Active Substance: QUETIAPINE
     Indication: INSOMNIA
     Dosage: 100 MG
     Route: 048
     Dates: start: 20150421

REACTIONS (8)
  - Suicidal ideation [Unknown]
  - Low density lipoprotein increased [Unknown]
  - Blood glucose increased [Unknown]
  - Insomnia [Unknown]
  - Bipolar disorder [Unknown]
  - Blood triglycerides increased [Unknown]
  - Mania [Not Recovered/Not Resolved]
  - Somnolence [Unknown]

NARRATIVE: CASE EVENT DATE: 20160209
